FAERS Safety Report 14502998 (Version 1)
Quarter: 2018Q1

REPORT INFORMATION
  Report Type: Spontaneous
  Country: US (occurrence: US)
  Receive Date: 20180208
  Receipt Date: 20180208
  Transmission Date: 20180509
  Serious: No
  Sender: FDA-Public Use
  Company Number: US-US WORLDMEDS, LLC-USW201701-000144

PATIENT
  Sex: Female
  Weight: 54.43 kg

DRUGS (4)
  1. NADOLOL. [Suspect]
     Active Substance: NADOLOL
     Indication: BLOOD PRESSURE MEASUREMENT
  2. LISINOPRIL. [Concomitant]
     Active Substance: LISINOPRIL
  3. VESICARE [Concomitant]
     Active Substance: SOLIFENACIN SUCCINATE
     Indication: HYPERTONIC BLADDER
  4. ENALAPRIL [Concomitant]
     Active Substance: ENALAPRIL
     Dates: start: 201609

REACTIONS (1)
  - Dizziness [Unknown]
